FAERS Safety Report 18164292 (Version 2)
Quarter: 2022Q1

REPORT INFORMATION
  Report Type: Spontaneous
  Country: CA (occurrence: CA)
  Receive Date: 20200818
  Receipt Date: 20220118
  Transmission Date: 20220423
  Serious: Yes (Life-Threatening)
  Sender: FDA-Public Use
  Company Number: CA-BAXTER-2020BAX016464

PATIENT
  Age: 23 Year
  Sex: Male

DRUGS (18)
  1. DOXORUBICIN HYDROCHLORIDE [Suspect]
     Active Substance: DOXORUBICIN HYDROCHLORIDE
     Indication: Undifferentiated sarcoma
     Route: 065
  2. DOXORUBICIN HYDROCHLORIDE [Suspect]
     Active Substance: DOXORUBICIN HYDROCHLORIDE
     Indication: Metastases to pancreas
     Dosage: DOSAGE FORM: SOLUTION INTRAVENOUS
     Route: 065
  3. CYCLOPHOSPHAMIDE [Suspect]
     Active Substance: CYCLOPHOSPHAMIDE
     Indication: Undifferentiated sarcoma
     Route: 065
  4. CYCLOPHOSPHAMIDE [Suspect]
     Active Substance: CYCLOPHOSPHAMIDE
     Indication: Metastases to pancreas
     Dosage: DOSAGE FORM: NOT SPECIFIED
     Route: 042
  5. IFEX [Suspect]
     Active Substance: IFOSFAMIDE
     Indication: Undifferentiated sarcoma
     Dosage: DOSAGE FORM: POWDER FOR SOLUTION INTRAVENOUS
     Route: 042
  6. IFEX [Suspect]
     Active Substance: IFOSFAMIDE
     Indication: Metastases to pancreas
     Route: 065
  7. DOCETAXEL [Suspect]
     Active Substance: DOCETAXEL
     Indication: Neoplasm recurrence
     Dosage: DOSAGE FORM: SOLUTION INTRAVENOUS
     Route: 065
  8. DOCETAXEL [Suspect]
     Active Substance: DOCETAXEL
     Indication: Metastases to pancreas
     Dosage: DOSAGE FORM: NOT SPECIFIED
     Route: 065
  9. ETOPOSIDE [Suspect]
     Active Substance: ETOPOSIDE
     Indication: Undifferentiated sarcoma
     Dosage: DOSAGE FORM: NOT SPECIFIED
     Route: 065
  10. ETOPOSIDE [Suspect]
     Active Substance: ETOPOSIDE
     Indication: Metastases to pancreas
     Route: 065
  11. GEMCITABINE HYDROCHLORIDE [Suspect]
     Active Substance: GEMCITABINE HYDROCHLORIDE
     Indication: Neoplasm recurrence
     Route: 065
  12. OLARATUMAB [Suspect]
     Active Substance: OLARATUMAB
     Indication: Undifferentiated sarcoma
     Route: 042
  13. TOPOTECAN [Suspect]
     Active Substance: TOPOTECAN HYDROCHLORIDE
     Indication: Undifferentiated sarcoma
     Route: 065
  14. TOPOTECAN [Suspect]
     Active Substance: TOPOTECAN HYDROCHLORIDE
     Indication: Metastases to pancreas
     Dosage: DOSAGE FORM: NOT SPECIFIED
     Route: 065
  15. VINCRISTINE SULFATE [Suspect]
     Active Substance: VINCRISTINE SULFATE
     Indication: Undifferentiated sarcoma
     Route: 065
  16. VINCRISTINE SULFATE [Suspect]
     Active Substance: VINCRISTINE SULFATE
     Indication: Metastases to pancreas
     Dosage: DOSAGE FORM: NOT SPECIFIED
     Route: 065
  17. VOTRIENT [Suspect]
     Active Substance: PAZOPANIB HYDROCHLORIDE
     Indication: Undifferentiated sarcoma
     Dosage: DOSAGE FORM: TABLETS
     Route: 065
  18. VOTRIENT [Suspect]
     Active Substance: PAZOPANIB HYDROCHLORIDE
     Indication: Metastases to pancreas
     Route: 065

REACTIONS (4)
  - Off label use [Unknown]
  - Product use in unapproved indication [Unknown]
  - Neoplasm recurrence [Unknown]
  - Malignant neoplasm progression [Unknown]
